FAERS Safety Report 16125952 (Version 1)
Quarter: 2019Q1

REPORT INFORMATION
  Report Type: Spontaneous
  Country: FR (occurrence: FR)
  Receive Date: 20190328
  Receipt Date: 20190328
  Transmission Date: 20190418
  Serious: Yes (Other)
  Sender: FDA-Public Use
  Company Number: FR-BRISTOL-MYERS SQUIBB COMPANY-BMS-2019-028576

PATIENT
  Age: 75 Year
  Sex: Male
  Weight: 83 kg

DRUGS (1)
  1. OPDIVO [Suspect]
     Active Substance: NIVOLUMAB
     Indication: LUNG NEOPLASM MALIGNANT
     Dosage: 1/CURE
     Route: 041
     Dates: start: 20181129, end: 20190110

REACTIONS (1)
  - Polyarthritis [Not Recovered/Not Resolved]

NARRATIVE: CASE EVENT DATE: 201812
